FAERS Safety Report 19908686 (Version 1)
Quarter: 2021Q4

REPORT INFORMATION
  Report Type: Spontaneous
  Country: US (occurrence: US)
  Receive Date: 20211001
  Receipt Date: 20211001
  Transmission Date: 20220303
  Serious: No
  Sender: FDA-Public Use
  Company Number: US-AMARIN PHARMA, INC.-2020AMR000628

PATIENT
  Age: 71 Year
  Sex: Male
  Weight: 97.61 kg

DRUGS (4)
  1. VASCEPA [Suspect]
     Active Substance: ICOSAPENT ETHYL
     Indication: Blood cholesterol abnormal
     Dates: start: 2016, end: 202008
  2. VASCEPA [Suspect]
     Active Substance: ICOSAPENT ETHYL
     Dates: start: 202008
  3. COZAAR [Concomitant]
     Active Substance: LOSARTAN POTASSIUM
     Indication: Blood pressure abnormal
  4. SYNTHROID [Concomitant]
     Active Substance: LEVOTHYROXINE SODIUM
     Indication: Hypothyroidism

REACTIONS (3)
  - Myalgia [Not Recovered/Not Resolved]
  - Arthralgia [Not Recovered/Not Resolved]
  - Underdose [Recovered/Resolved]

NARRATIVE: CASE EVENT DATE: 20190101
